FAERS Safety Report 11776331 (Version 2)
Quarter: 2015Q4

REPORT INFORMATION
  Report Type: Spontaneous
  Country: US (occurrence: US)
  Receive Date: 20151125
  Receipt Date: 20151211
  Transmission Date: 20160304
  Serious: Yes (Hospitalization)
  Sender: FDA-Public Use
  Company Number: US-AUROBINDO-AUR-APL-2015-10590

PATIENT
  Age: 53 Year

DRUGS (1)
  1. ZOLPIDEM [Suspect]
     Active Substance: ZOLPIDEM\ZOLPIDEM TARTRATE
     Indication: INSOMNIA
     Dosage: UNK
     Route: 065

REACTIONS (7)
  - Delirium [Unknown]
  - Aggression [Unknown]
  - Overdose [Unknown]
  - Confusional state [Unknown]
  - Mental status changes [Unknown]
  - Somnolence [Unknown]
  - Coma scale abnormal [Unknown]
